FAERS Safety Report 4707153-6 (Version None)
Quarter: 2005Q3

REPORT INFORMATION
  Report Type: 
  Country: None (occurrence: None)
  Receive Date: 20050706
  Receipt Date: 20050622
  Transmission Date: 20060218
  Serious: Yes (Other)
  Sender: FDA-Public Use
  Company Number: GB-JNJFOC-20050605918

PATIENT
  Sex: Male

DRUGS (5)
  1. REMICADE [Suspect]
     Indication: JUVENILE ARTHRITIS
     Route: 042
  2. METHOTREXATE [Suspect]
     Indication: JUVENILE ARTHRITIS
     Route: 058
  3. ENBREL [Suspect]
     Indication: JUVENILE ARTHRITIS
     Route: 065
  4. NSAIDS [Suspect]
     Route: 065
  5. STERIODS [Suspect]
     Route: 065

REACTIONS (3)
  - NAUSEA [None]
  - PERICARDITIS [None]
  - VOMITING [None]
